FAERS Safety Report 12567223 (Version 2)
Quarter: 2017Q4

REPORT INFORMATION
  Report Type: Report from Study
  Country: FR (occurrence: FR)
  Receive Date: 20160718
  Receipt Date: 20171211
  Transmission Date: 20180320
  Serious: Yes (Other)
  Sender: FDA-Public Use
  Company Number: FR-EXELIXIS-XL18416006237

PATIENT
  Age: 65 Year

DRUGS (1)
  1. XL184 [Suspect]
     Active Substance: CABOZANTINIB
     Indication: OSTEOSARCOMA
     Dosage: 60 MG, QD
     Route: 048
     Dates: start: 20151026

REACTIONS (3)
  - General physical health deterioration [Unknown]
  - Anal inflammation [Recovered/Resolved]
  - Hypothermia [Unknown]

NARRATIVE: CASE EVENT DATE: 20151113
